FAERS Safety Report 4645769-6 (Version None)
Quarter: 2005Q2

REPORT INFORMATION
  Report Type: 
  Country: None (occurrence: None)
  Receive Date: 20050425
  Receipt Date: 20050408
  Transmission Date: 20051028
  Serious: Yes (Hospitalization)
  Sender: FDA-Public Use
  Company Number: 200510166BYL

PATIENT
  Age: 68 Year
  Sex: Male
  Weight: 72 kg

DRUGS (8)
  1. ASPIRIN [Suspect]
     Indication: MYOCARDIAL ISCHAEMIA
     Dosage: 100 MG, QD, ORAL
     Route: 048
     Dates: start: 20050309, end: 20050314
  2. ACECOL (TEMOCAPRIL HYDROCHLROIDE) [Suspect]
     Indication: MYOCARDIAL ISCHAEMIA
     Dosage: 1 MG, QD, ORAL
     Route: 048
     Dates: start: 20050309, end: 20050414
  3. LASIX [Suspect]
     Indication: CARDIAC FAILURE
     Dosage: 20 MG, BID, ORAL
     Route: 048
     Dates: start: 20050309, end: 20050314
  4. ALDACTONE-A [Concomitant]
  5. HEPARIN [Concomitant]
  6. VOLTAREN [Concomitant]
  7. BLOPRESS [Concomitant]
  8. TORSEMIDE [Concomitant]

REACTIONS (4)
  - HISTIOCYTOSIS HAEMATOPHAGIC [None]
  - LEUKOPENIA [None]
  - LYMPHOCYTE STIMULATION TEST POSITIVE [None]
  - PYREXIA [None]
